FAERS Safety Report 6882956-0 (Version None)
Quarter: 2010Q3

REPORT INFORMATION
  Report Type: 
  Country: None (occurrence: None)
  Receive Date: 20100702
  Receipt Date: 20100421
  Transmission Date: 20110219
  Serious: Yes (Other)
  Sender: FDA-Public Use
  Company Number: 2010040038

PATIENT
  Age: 62 Year
  Sex: Male
  Weight: 85.3 kg

DRUGS (4)
  1. ZOLOFT [Suspect]
     Indication: DYSTHYMIC DISORDER
     Dosage: 50 MG, 1X/DAY, ORAL
     Route: 048
     Dates: start: 20090801, end: 20090831
  2. ASPIRIN [Concomitant]
  3. AVAPRO [Concomitant]
  4. LOVAZA [Concomitant]

REACTIONS (3)
  - BLOOD CHOLESTEROL INCREASED [None]
  - DRUG INEFFECTIVE [None]
  - GYNAECOMASTIA [None]
